FAERS Safety Report 9920890 (Version 2)
Quarter: 2014Q1

REPORT INFORMATION
  Report Type: Report from Study
  Country: US (occurrence: US)
  Receive Date: 20140225
  Receipt Date: 20140225
  Transmission Date: 20141002
  Serious: Yes (Hospitalization)
  Sender: FDA-Public Use
  Company Number: US-ROCHE-1143633

PATIENT
  Age: 41 Year
  Sex: Female
  Weight: 65.9 kg

DRUGS (22)
  1. OBINUTUZUMAB [Suspect]
     Indication: NON-HODGKIN^S LYMPHOMA
     Dosage: LAST DOSE TAKEN- 1000 MG;DATE OF MOST RECENT DOSE PRIOR TO AE ONSET- 01/OCT/2012
     Route: 042
     Dates: start: 20120925
  2. PREDNISONE [Suspect]
     Indication: NON-HODGKIN^S LYMPHOMA
     Dosage: LAST DOSE TAKEN-100 MG; DATE OF MOST RECENT DOSE PRIOR TO AE ONSET- 28/SEP/2012
     Route: 042
     Dates: start: 20120924
  3. CYCLOPHOSPHAMIDE [Suspect]
     Indication: NON-HODGKIN^S LYMPHOMA
     Dosage: LAST DOSE TAKEN- 1350 MG; DATE OF MOST RECENT DOSE PRIOR TO AE ONSET- 24/SEP/2012
     Route: 042
     Dates: start: 20120924
  4. DOXORUBICIN [Suspect]
     Indication: NON-HODGKIN^S LYMPHOMA
     Dosage: LAST DOSE TAKEN- 90 MG; DATE OF MOST RECENT DOSE PRIOR TO AE ONSET- 24/SEP/2012
     Route: 042
     Dates: start: 20120924
  5. VINCRISTINE [Suspect]
     Indication: NON-HODGKIN^S LYMPHOMA
     Dosage: LAST DOSE TAKEN-2 MG; DATE OF MOST RECENT DOSE PRIOR TO AE ONSET-24/SEP/2012
     Route: 042
     Dates: start: 20120924
  6. TYLENOL [Concomitant]
     Indication: PYREXIA
     Route: 065
     Dates: start: 20120924
  7. IBUPROFEN [Concomitant]
     Indication: PYREXIA
     Route: 065
     Dates: start: 20120917
  8. IBUPROFEN [Concomitant]
     Route: 065
     Dates: start: 20120925, end: 20120925
  9. EPITOL [Concomitant]
     Indication: CONVULSION
     Route: 065
     Dates: start: 1998
  10. ALOXI [Concomitant]
     Route: 065
     Dates: start: 20120924, end: 20120924
  11. ACETAMINOPHEN [Concomitant]
     Route: 065
     Dates: start: 20120925, end: 20120925
  12. ACETAMINOPHEN [Concomitant]
     Route: 065
     Dates: start: 20121001, end: 20121001
  13. DOCUSATE SODIUM [Concomitant]
     Route: 065
     Dates: start: 20121008, end: 20121010
  14. MORPHINE SULFATE [Concomitant]
     Route: 065
     Dates: start: 20121008, end: 20121010
  15. SODIUM CHLORIDE [Concomitant]
     Indication: HYPONATRAEMIA
     Route: 065
     Dates: start: 20121005, end: 20121005
  16. NYSTATIN [Concomitant]
     Route: 065
     Dates: start: 20121006, end: 20121008
  17. LIDOCAINE [Concomitant]
     Route: 065
     Dates: start: 20121006, end: 20121008
  18. HYDROMORPHONE [Concomitant]
     Route: 065
     Dates: start: 20121005, end: 20121005
  19. POTASSIUM CHLORIDE [Concomitant]
     Indication: HYPOKALAEMIA
     Route: 048
     Dates: start: 20121005, end: 20121007
  20. POTASSIUM CHLORIDE [Concomitant]
     Route: 042
     Dates: start: 20121007, end: 20121007
  21. CARBAMAZEPINE [Concomitant]
     Indication: CONVULSION
     Route: 065
     Dates: start: 20121006, end: 20121010
  22. BUPROPION [Concomitant]
     Indication: DEPRESSION
     Route: 065
     Dates: start: 20121010

REACTIONS (1)
  - Febrile neutropenia [Recovered/Resolved]
